FAERS Safety Report 6062365-7 (Version None)
Quarter: 2009Q1

REPORT INFORMATION
  Report Type: 
  Country: None (occurrence: None)
  Receive Date: 20090129
  Receipt Date: 20090122
  Transmission Date: 20090719
  Serious: No
  Sender: FDA-Public Use
  Company Number: MSTR-NO-0807S-0045

PATIENT
  Age: 77 Year
  Sex: Male
  Weight: 53.8 kg

DRUGS (3)
  1. METASTRON [Suspect]
     Indication: METASTATIC PAIN
     Dosage: NR, SINGLE DOSE, I.V.
     Route: 042
     Dates: start: 20080306, end: 20080306
  2. PAMIDRONATE DISODIUM [Concomitant]
  3. ZOLEDRONIC ACID [Concomitant]

REACTIONS (7)
  - ABDOMINAL PAIN UPPER [None]
  - ANAEMIA [None]
  - BLOOD PRESSURE DECREASED [None]
  - DISEASE PROGRESSION [None]
  - HEART RATE INCREASED [None]
  - INTESTINAL OBSTRUCTION [None]
  - VOMITING [None]
